FAERS Safety Report 9348581 (Version 1)
Quarter: 2013Q2

REPORT INFORMATION
  Report Type: Report from Study
  Country: US (occurrence: US)
  Receive Date: 20130614
  Receipt Date: 20130614
  Transmission Date: 20140414
  Serious: Yes (Other)
  Sender: FDA-Public Use
  Company Number: US-SANOFI-AVENTIS-2013SA059337

PATIENT
  Sex: Female

DRUGS (1)
  1. AUBAGIO [Suspect]

REACTIONS (1)
  - Mania [Unknown]
